FAERS Safety Report 6086592-8 (Version None)
Quarter: 2009Q1

REPORT INFORMATION
  Report Type: 
  Country: None (occurrence: None)
  Receive Date: 20090223
  Receipt Date: 20090105
  Transmission Date: 20090719
  Serious: Yes (Other)
  Sender: FDA-Public Use
  Company Number: US-PFIZER INC-2008083921

PATIENT
  Sex: Female
  Weight: 220 kg

DRUGS (14)
  1. CHANTIX [Suspect]
     Indication: SMOKING CESSATION THERAPY
     Dosage: UNK
     Route: 048
     Dates: start: 20070612, end: 20080901
  2. NITROGLYCERIN [Concomitant]
     Indication: CHEST PAIN
     Dosage: UNK
     Route: 060
  3. FUROSEMIDE [Concomitant]
     Dosage: UNK
     Route: 048
  4. VALSARTAN [Concomitant]
     Indication: HYPERTENSION
     Dosage: UNK
     Route: 048
  5. ACETYLSALICYLIC ACID [Concomitant]
     Dosage: UNK
     Route: 048
  6. FLUOXETINE [Concomitant]
     Dosage: UNK
     Route: 048
  7. GABAPENTIN [Concomitant]
     Dosage: UNK
     Route: 048
  8. LORATADINE [Concomitant]
     Indication: HYPERSENSITIVITY
     Dosage: UNK
     Route: 048
  9. GLUCOVANCE [Concomitant]
     Dosage: UNK
     Route: 048
  10. LISINOPRIL [Concomitant]
     Dosage: UNK
     Route: 048
  11. ATORVASTATIN [Concomitant]
     Dosage: UNK
     Route: 048
  12. NOVOLIN N [Concomitant]
     Dosage: UNK
     Route: 058
  13. PROZAC [Concomitant]
     Indication: SEASONAL AFFECTIVE DISORDER
     Dosage: UNK
     Route: 048
  14. METOPROLOL [Concomitant]
     Dosage: UNK
     Route: 048

REACTIONS (1)
  - DEPRESSION [None]
